FAERS Safety Report 8004517-2 (Version None)
Quarter: 2011Q4

REPORT INFORMATION
  Report Type: 
  Country: None (occurrence: None)
  Receive Date: 20111221
  Receipt Date: 20111221
  Transmission Date: 20120403
  Serious: Yes (Hospitalization)
  Sender: FDA-Public Use
  Company Number: None

PATIENT
  Age: 96 Year
  Sex: Female
  Weight: 62.8 kg

DRUGS (6)
  1. TAMSULOSIN HCL [Concomitant]
  2. RAMIPRIL [Concomitant]
  3. CARVEDILOL [Concomitant]
  4. M.V.I. [Concomitant]
  5. COUMADIN [Suspect]
     Indication: ATRIAL FIBRILLATION
     Dosage: 6MG DAILY PO CHRONIC
     Route: 048
  6. LASIX [Concomitant]

REACTIONS (4)
  - INTERNATIONAL NORMALISED RATIO INCREASED [None]
  - PERICARDIAL EFFUSION [None]
  - PERICARDIAL HAEMORRHAGE [None]
  - FIBRIN D DIMER INCREASED [None]
